FAERS Safety Report 4967462-2 (Version None)
Quarter: 2006Q2

REPORT INFORMATION
  Report Type: 
  Country: None (occurrence: None)
  Receive Date: 20060410
  Receipt Date: 20060405
  Transmission Date: 20061013
  Serious: Yes (Hospitalization)
  Sender: FDA-Public Use
  Company Number: 2006AP01609

PATIENT
  Age: 85 Year
  Sex: Male
  Weight: 65 kg

DRUGS (7)
  1. CASODEX [Suspect]
     Indication: PROSTATE CANCER
     Route: 048
     Dates: start: 20051221, end: 20060317
  2. LEUPLIN [Suspect]
     Indication: PROSTATE CANCER
     Route: 048
     Dates: start: 20060126, end: 20060220
  3. TAMSULOSIN HYDROCHLORIDE [Concomitant]
     Route: 048
  4. EVIPROSTAT [Concomitant]
     Route: 048
  5. ALESION [Concomitant]
     Route: 048
  6. ZANTAC [Concomitant]
  7. LAXOBERON [Concomitant]
     Route: 048

REACTIONS (4)
  - DYSPNOEA [None]
  - HAEMOPTYSIS [None]
  - INFLAMMATION [None]
  - INTERSTITIAL LUNG DISEASE [None]
